FAERS Safety Report 16671796 (Version 1)
Quarter: 2019Q3

REPORT INFORMATION
  Report Type: Spontaneous
  Country: US (occurrence: US)
  Receive Date: 20190806
  Receipt Date: 20190806
  Transmission Date: 20191004
  Serious: Yes (Other)
  Sender: FDA-Public Use
  Company Number: US-TEVA-2019-US-1087231

PATIENT
  Age: 22 Year
  Sex: Female

DRUGS (7)
  1. PLAQUENIL [Suspect]
     Active Substance: HYDROXYCHLOROQUINE SULFATE
     Indication: DERMATOMYOSITIS
     Dosage: 400 MILLIGRAM DAILY; 200 MG TWICE DAILY
     Route: 048
  2. FOLATE [Concomitant]
     Active Substance: FOLATE SODIUM
     Indication: DERMATOMYOSITIS
     Route: 048
  3. FLUOCINONIDE ACETONIDE [Concomitant]
     Indication: DERMATOMYOSITIS
     Dosage: APPLIED ON SCALP
     Route: 061
  4. HYDROCORTISONE BUTYRATE. [Concomitant]
     Active Substance: HYDROCORTISONE BUTYRATE
     Indication: DERMATOMYOSITIS
     Dosage: APPLIED ON AFFECTED AREAS OF THE FACE
     Route: 061
  5. METHOTREXATE. [Suspect]
     Active Substance: METHOTREXATE
     Indication: DERMATOMYOSITIS
     Dosage: 7.5 MG WEEKLY
     Route: 048
  6. PREDNISONE. [Concomitant]
     Active Substance: PREDNISONE
     Indication: DERMATOMYOSITIS
     Route: 048
  7. TRIAMCINOLONE ACETONIDE. [Concomitant]
     Active Substance: TRIAMCINOLONE ACETONIDE
     Indication: DERMATOMYOSITIS
     Dosage: APPLIED TO AFFECTED SKIN AND TRUNK
     Route: 061

REACTIONS (1)
  - Pancytopenia [Unknown]
